FAERS Safety Report 10739224 (Version 1)
Quarter: 2015Q1

REPORT INFORMATION
  Report Type: Spontaneous
  Country: US (occurrence: US)
  Receive Date: 20150126
  Receipt Date: 20150126
  Transmission Date: 20150721
  Serious: Yes (Hospitalization, Disabling)
  Sender: FDA-Public Use
  Company Number: US-CELGENEUS-163-10004-14093240

PATIENT
  Age: 37 Year
  Sex: Female
  Weight: 70.37 kg

DRUGS (33)
  1. OTEZLA [Suspect]
     Active Substance: APREMILAST
     Indication: PSORIATIC ARTHROPATHY
     Dosage: 60 MILLIGRAM
     Route: 048
     Dates: start: 20140820, end: 20140912
  2. CEFDINIR. [Concomitant]
     Active Substance: CEFDINIR
     Route: 048
  3. TRIAMCINOLONE ACETONIDE. [Concomitant]
     Active Substance: TRIAMCINOLONE ACETONIDE
     Dosage: 51 GRAM
     Route: 065
  4. BETAMETHASONE DIPROPIONATE. [Concomitant]
     Active Substance: BETAMETHASONE DIPROPIONATE
     Route: 061
  5. VITAMIN D3 [Concomitant]
     Active Substance: CHOLECALCIFEROL
     Dosage: 2000 UNIT
     Route: 048
  6. MULTIVITAMINS [Concomitant]
     Active Substance: VITAMINS
     Route: 048
  7. ONDANSETRON [Concomitant]
     Active Substance: ONDANSETRON
     Route: 048
  8. OTEZLA [Suspect]
     Active Substance: APREMILAST
     Indication: ABDOMINAL DISCOMFORT
  9. FLUCONAZOLE. [Concomitant]
     Active Substance: FLUCONAZOLE
     Route: 048
  10. NEURONTIN [Concomitant]
     Active Substance: GABAPENTIN
     Dosage: 20 MILLIGRAM
     Route: 048
  11. MORPHINE [Concomitant]
     Active Substance: MORPHINE
     Route: 048
  12. CASTELLANI PAINT [Concomitant]
     Active Substance: PHENOL
     Route: 061
  13. HOMATROPINE HBR [Concomitant]
     Dosage: 6 DROPS
     Route: 047
  14. PROBIOTIC [Concomitant]
     Active Substance: PROBIOTICS NOS
     Dosage: 10 BILLIONCELL
     Route: 048
  15. RITUXAN [Concomitant]
     Active Substance: RITUXIMAB
     Indication: PRODUCT USED FOR UNKNOWN INDICATION
     Dosage: 1000
     Route: 041
  16. BENADRYL [Concomitant]
     Active Substance: DIPHENHYDRAMINE HYDROCHLORIDE
     Dosage: 600 MILLIGRAM
     Route: 048
  17. POLYETHYLENE GLYCOL 3350. [Concomitant]
     Active Substance: POLYETHYLENE GLYCOL 3350
     Dosage: 4 PERCENT
     Route: 048
  18. PREDNISOLONE ACETATE. [Concomitant]
     Active Substance: PREDNISOLONE ACETATE
     Route: 047
  19. PROTEIN POWDER [Concomitant]
     Dosage: 1 SCOOPFUL
     Route: 065
  20. ACETAMINOPHEN. [Concomitant]
     Active Substance: ACETAMINOPHEN
     Route: 048
  21. ALBUTEROL SULFATE. [Concomitant]
     Active Substance: ALBUTEROL SULFATE
     Dosage: 2.5MG/3ML
     Route: 055
  22. MORPHINE [Concomitant]
     Active Substance: MORPHINE
     Dosage: 600 MILLIGRAM
     Route: 048
  23. TEA TREE OIL [Concomitant]
     Active Substance: TEA TREE OIL
     Route: 061
  24. XANAX [Concomitant]
     Active Substance: ALPRAZOLAM
     Indication: ANXIETY
     Route: 048
  25. REFRESH TEARS [Concomitant]
     Active Substance: CARBOXYMETHYLCELLULOSE SODIUM
     Route: 047
  26. VITAMIN B12 [Concomitant]
     Active Substance: CYANOCOBALAMIN
     Dosage: 1 MILLIGRAM
     Route: 060
  27. CYCLOBENZAPRINE [Concomitant]
     Active Substance: CYCLOBENZAPRINE
     Dosage: .1 PERCENT
     Route: 048
  28. RESTASIS [Concomitant]
     Active Substance: CYCLOSPORINE
     Route: 047
  29. DUREZOL [Concomitant]
     Active Substance: DIFLUPREDNATE
     Route: 047
  30. FLUOCINOLONE [Concomitant]
     Active Substance: FLUOCINOLONE
     Dosage: 1000 MICROGRAM
     Route: 061
  31. DESENEX NOS [Concomitant]
     Active Substance: CLOTRIMAZOLE OR MICONAZOLE NITRATE
     Route: 061
  32. OMEPRAZOLE. [Concomitant]
     Active Substance: OMEPRAZOLE
     Dosage: 3 DROPS
     Route: 048
  33. PREDNISONE. [Concomitant]
     Active Substance: PREDNISONE
     Dosage: 1 TABLET
     Route: 048

REACTIONS (11)
  - Vomiting [Unknown]
  - Pneumonia [Unknown]
  - Depression [Unknown]
  - Chest discomfort [Recovered/Resolved]
  - Nasopharyngitis [Unknown]
  - Abdominal pain upper [Unknown]
  - Migraine [Recovered/Resolved]
  - Mood swings [Unknown]
  - Nausea [Unknown]
  - Malaise [Recovered/Resolved]
  - Decreased appetite [Unknown]

NARRATIVE: CASE EVENT DATE: 20140912
